FAERS Safety Report 23168485 (Version 1)
Quarter: 2023Q4

REPORT INFORMATION
  Report Type: Report from Study
  Country: CN (occurrence: CN)
  Receive Date: 20231110
  Receipt Date: 20231110
  Transmission Date: 20240109
  Serious: Yes (Hospitalization)
  Sender: FDA-Public Use
  Company Number: CN-JNJFOC-20231108341

PATIENT
  Age: 72 Year
  Sex: Female
  Weight: 41 kg

DRUGS (30)
  1. DARATUMUMAB [Suspect]
     Active Substance: DARATUMUMAB
     Indication: Plasma cell myeloma
     Dosage: MOST RECENT DOSE ON 30-OCT-2023
     Route: 058
     Dates: start: 20231016
  2. TALQUETAMAB [Suspect]
     Active Substance: TALQUETAMAB
     Indication: Plasma cell myeloma
     Dosage: MOST RECENT DOSE ON 30-OCT-2023
     Route: 058
     Dates: start: 20231017
  3. ACARBOSE [Concomitant]
     Active Substance: ACARBOSE
     Indication: Type 2 diabetes mellitus
     Route: 048
     Dates: start: 20230101
  4. ALOGLIPTIN BENZOATE [Concomitant]
     Active Substance: ALOGLIPTIN BENZOATE
     Indication: Type 2 diabetes mellitus
     Route: 048
     Dates: start: 20230101
  5. STEGLATRO [Concomitant]
     Active Substance: ERTUGLIFLOZIN PIDOLATE
     Indication: Type 2 diabetes mellitus
     Route: 048
     Dates: start: 20230101
  6. CANDESARTAN [Concomitant]
     Active Substance: CANDESARTAN
     Indication: Hypertension
     Route: 048
     Dates: start: 20230101
  7. FELODIPINE [Concomitant]
     Active Substance: FELODIPINE
     Indication: Hypertension
     Route: 048
     Dates: start: 20230101
  8. PRAVASTATIN [Concomitant]
     Active Substance: PRAVASTATIN
     Indication: Hyperlipidaemia
     Route: 048
     Dates: start: 20230101
  9. ACYCLOVIR [Concomitant]
     Active Substance: ACYCLOVIR
     Indication: Antiviral prophylaxis
     Route: 048
     Dates: start: 20230310
  10. CLOPIDOGREL BISULFATE [Concomitant]
     Active Substance: CLOPIDOGREL BISULFATE
     Indication: Thrombosis prophylaxis
     Route: 048
     Dates: start: 20230310
  11. LANSOPRAZOLE [Concomitant]
     Active Substance: LANSOPRAZOLE
     Indication: Gastrointestinal disorder therapy
     Route: 048
     Dates: start: 20230310
  12. METHYLCOBALAMIN [Concomitant]
     Active Substance: METHYLCOBALAMIN
     Indication: Nervous system disorder
     Route: 048
     Dates: start: 20230310
  13. CALCIUM ACETATE [Concomitant]
     Active Substance: CALCIUM ACETATE
     Indication: Mineral supplementation
     Route: 048
     Dates: start: 20230301
  14. VITAMIN B COMPLEX [Concomitant]
     Active Substance: CYANOCOBALAMIN\DEXPANTHENOL\NIACINAMIDE\PYRIDOXINE HYDROCHLORIDE\RIBOFLAVIN 5^-PHOSPHATE SODIUM\THIA
     Indication: Vitamin supplementation
     Route: 048
     Dates: start: 20230701
  15. SANGUISORBA OFFICINALIS [Concomitant]
     Indication: Leukopenia
     Route: 048
     Dates: start: 20230930
  16. BUCLADESINE CALCIUM [Concomitant]
     Active Substance: BUCLADESINE CALCIUM
     Indication: Cardiac disorder
     Route: 042
     Dates: start: 20231016, end: 20231026
  17. BUCLADESINE CALCIUM [Concomitant]
     Active Substance: BUCLADESINE CALCIUM
     Route: 042
     Dates: start: 20231030, end: 20231101
  18. MAGNESIUM ISOGLYCYRRHIZINATE [Concomitant]
     Active Substance: MAGNESIUM ISOGLYCYRRHIZINATE
     Indication: Liver disorder
     Route: 042
     Dates: start: 20231016, end: 20231026
  19. MAGNESIUM ISOGLYCYRRHIZINATE [Concomitant]
     Active Substance: MAGNESIUM ISOGLYCYRRHIZINATE
     Route: 042
     Dates: start: 20231030, end: 20231101
  20. PANTOPRAZOLE [Concomitant]
     Active Substance: PANTOPRAZOLE
     Indication: Gastrointestinal disorder therapy
     Route: 042
     Dates: start: 20231017, end: 20231026
  21. PANTOPRAZOLE [Concomitant]
     Active Substance: PANTOPRAZOLE
     Route: 042
     Dates: start: 20231030, end: 20231101
  22. EBASTINE [Concomitant]
     Active Substance: EBASTINE
     Indication: Dermatitis allergic
     Route: 048
     Dates: start: 20231021, end: 20231026
  23. EBASTINE [Concomitant]
     Active Substance: EBASTINE
     Route: 048
     Dates: start: 20231101
  24. CEFDINIR [Concomitant]
     Active Substance: CEFDINIR
     Indication: Tonsillitis
     Route: 048
     Dates: start: 20231025, end: 20231026
  25. CEFDINIR [Concomitant]
     Active Substance: CEFDINIR
     Route: 048
     Dates: start: 20231026, end: 20231030
  26. CEFDINIR [Concomitant]
     Active Substance: CEFDINIR
     Route: 048
     Dates: start: 20231031
  27. CALCITRIOL [Concomitant]
     Active Substance: CALCITRIOL
     Indication: Mineral supplementation
     Route: 048
     Dates: start: 20231026
  28. AMBROXOL [Concomitant]
     Active Substance: AMBROXOL
     Indication: Bronchitis
     Route: 042
     Dates: start: 20231031, end: 20231101
  29. EUCALYPTOL, LIMONENE AND PINENE [Concomitant]
     Indication: Bronchitis
     Route: 048
     Dates: start: 20231031, end: 20231101
  30. DYPHYLLINE [Concomitant]
     Active Substance: DYPHYLLINE
     Indication: Bronchitis
     Route: 042
     Dates: start: 20231101, end: 20231106

REACTIONS (1)
  - Cytokine release syndrome [Recovered/Resolved]

NARRATIVE: CASE EVENT DATE: 20231101
